FAERS Safety Report 8267198-9 (Version None)
Quarter: 2012Q2

REPORT INFORMATION
  Report Type: 
  Country: None (occurrence: None)
  Receive Date: 20120409
  Receipt Date: 20120402
  Transmission Date: 20120825
  Serious: Yes (Other)
  Sender: FDA-Public Use
  Company Number: US-PFIZER INC-2012048829

PATIENT
  Sex: Female
  Weight: 70.3 kg

DRUGS (26)
  1. VOLTAREN [Concomitant]
     Dosage: APPLYING TO AFFECTED AREA FOUR TIMES DAILY
  2. DOLOPHINE HYDROCHLORIDE [Concomitant]
     Dosage: 5 MG, 3X/DAY
     Route: 048
  3. METHADONE HCL [Suspect]
     Indication: PAIN
     Dosage: 5 MG, 4X/DAY
     Dates: start: 20080101
  4. COZAAR [Concomitant]
     Dosage: 50 MG, DAILY
     Route: 048
  5. CENTRUM [Concomitant]
     Dosage: 3,500-1 1-0.4 UNIT-MG-MG CHEW: TAKE 1 TAB BY MOUTH EVERY DAY
     Route: 048
  6. EFFEXOR [Concomitant]
     Dosage: 75 MG DAILY
     Route: 048
  7. ALBUTEROL [Concomitant]
     Dosage: 90 MG/ACTUATION INHALER: INHALE 1-2 PUFFS AS DIRECTED EVERY 4 HOURS
     Route: 045
  8. MICRO-K [Concomitant]
     Dosage: 10 MEQ, 2X/DAY
     Route: 048
  9. DESYREL [Concomitant]
     Dosage: 150 MG, AT BEDTIME AS NEEDED
     Route: 048
  10. AMYLASE/LIPASE/PROTEASE [Concomitant]
     Dosage: 1200 MG, 6 TIMES DAILY
     Route: 048
  11. EFFEXOR XR [Suspect]
     Indication: DEPRESSION
  12. ROBAXIN [Concomitant]
     Indication: MUSCLE RELAXANT THERAPY
     Dosage: 750 MG, 4X/DAY
  13. FLECTOR [Concomitant]
     Dosage: 180 MG, 2X/DAY
  14. COLACE [Concomitant]
     Dosage: 100 MG, DAILY
     Route: 048
  15. EFFEXOR XR [Suspect]
     Indication: PAIN
     Dosage: 150 MG, 1X/DAY
     Dates: start: 19980101, end: 20110101
  16. LYRICA [Suspect]
     Indication: FIBROMYALGIA
     Dosage: 100 MG, 1X/DAY
  17. ROBAXIN [Concomitant]
     Dosage: 750 MG, SIX (6) TIMES DAILY
     Route: 048
  18. PREMARIN [Concomitant]
     Indication: HORMONE THERAPY
     Dosage: 1.25 MG, UNK (TAKE 1.25 MG BY MOUTH EVERY DAY)
     Route: 048
  19. PROTONIX [Concomitant]
     Dosage: 40 MG, DAILY
     Route: 048
  20. ZOVIRAX [Concomitant]
     Dosage: 5 % CREA CREAM: APPLY 1 APPLICATION TO AFFECTED AREA FIVE TIMES DAILY
  21. ZOVIRAX [Concomitant]
     Dosage: 800 MG 5 TIMES DAILY
     Route: 048
  22. COMBIVENT [Concomitant]
     Dosage: 18-103 MCG/ACTUATION INHALER: INHALE 2 PUFFS AS DIRECED 4 TIMES DAILY
     Route: 045
  23. VALIUM [Concomitant]
     Dosage: 10 MG, 3X/DAY
     Route: 048
  24. CREON [Concomitant]
     Indication: PANCREATITIS CHRONIC
     Dosage: 4000 IU, 6X/DAY
  25. DOLOPHINE HYDROCHLORIDE [Concomitant]
     Dosage: 5 MG, 4X/DAY
  26. ZOFRAN [Concomitant]
     Indication: NAUSEA
     Dosage: 4 MG, TAKE 1 TABLET EVERY 6 HOURS AS NEEDED
     Route: 048

REACTIONS (4)
  - BLOOD CHOLESTEROL INCREASED [None]
  - DRUG INEFFECTIVE [None]
  - FIBROMYALGIA [None]
  - MEMORY IMPAIRMENT [None]
